FAERS Safety Report 9333487 (Version 3)
Quarter: 2013Q3

REPORT INFORMATION
  Report Type: Spontaneous
  Country: IT (occurrence: IT)
  Receive Date: 20130606
  Receipt Date: 20130913
  Transmission Date: 20140515
  Serious: Yes (Other)
  Sender: FDA-Public Use
  Company Number: IT-VERTEX PHARMACEUTICALS INC-2013-006805

PATIENT
  Age: 73 Year
  Sex: Female
  Weight: 64 kg

DRUGS (7)
  1. INCIVO [Suspect]
     Indication: CHRONIC HEPATITIS C
     Dosage: 6 DF, QD
     Route: 048
     Dates: start: 20130223, end: 20130517
  2. REBETOL [Concomitant]
     Indication: PRODUCT USED FOR UNKNOWN INDICATION
     Dosage: DOSAGE FORM: CAPSULE, HARD
     Route: 048
     Dates: start: 20130223
  3. REBETOL [Concomitant]
     Indication: CHRONIC HEPATITIS C
  4. PEGASYS [Concomitant]
     Indication: PRODUCT USED FOR UNKNOWN INDICATION
     Dosage: DOSAGE FORM: SOLUTION FOR INJECTION
     Route: 058
     Dates: start: 20130223
  5. PEGASYS [Concomitant]
     Indication: CHRONIC HEPATITIS C
  6. RAMIPRIL [Concomitant]
     Indication: HYPERTENSION
     Dosage: DOSAGE FORM: TABLET
     Route: 048
  7. MODURETIC [Concomitant]
     Indication: HYPERTENSION
     Dosage: DOSAGE FORM: TABLET, HALF TABLET ONE EVERY 2 DAYS
     Route: 048

REACTIONS (1)
  - Rash [Recovered/Resolved]
